FAERS Safety Report 4463791-X (Version None)
Quarter: 2004Q4

REPORT INFORMATION
  Report Type: 
  Country: None (occurrence: None)
  Receive Date: 20041001
  Receipt Date: 20040929
  Transmission Date: 20050328
  Serious: Yes (Other)
  Sender: FDA-Public Use
  Company Number: FR-JNJFOC-20040800179

PATIENT
  Sex: Male

DRUGS (1)
  1. PROPULSID [Suspect]
     Route: 049
     Dates: start: 20031014, end: 20031101

REACTIONS (1)
  - ACQUIRED PYLORIC STENOSIS [None]
